FAERS Safety Report 5534255-7 (Version None)
Quarter: 2007Q4

REPORT INFORMATION
  Report Type: 
  Country: None (occurrence: None)
  Receive Date: 20071205
  Receipt Date: 20071127
  Transmission Date: 20080405
  Serious: Yes (Hospitalization)
  Sender: FDA-Public Use
  Company Number: MY-AVENTIS-200720845GDDC

PATIENT
  Age: 8 Year
  Sex: Male
  Weight: 21 kg

DRUGS (2)
  1. CLAFORAN [Suspect]
     Indication: SINUSITIS
     Route: 042
     Dates: start: 20071120, end: 20071122
  2. COUGH AND COLD PREPARATIONS [Concomitant]

REACTIONS (6)
  - ABNORMAL BEHAVIOUR [None]
  - CONFUSIONAL STATE [None]
  - ENCEPHALITIS [None]
  - HEADACHE [None]
  - PSYCHOMOTOR HYPERACTIVITY [None]
  - RESTLESSNESS [None]
